FAERS Safety Report 6819338-3 (Version None)
Quarter: 2010Q3

REPORT INFORMATION
  Report Type: 
  Country: None (occurrence: None)
  Receive Date: 20100707
  Receipt Date: 20100629
  Transmission Date: 20110219
  Serious: Yes (Hospitalization)
  Sender: FDA-Public Use
  Company Number: JP-SANOFI-AVENTIS-200913026JP

PATIENT
  Age: 52 Year
  Sex: Male
  Weight: 55 kg

DRUGS (15)
  1. ARAVA [Suspect]
     Indication: RHEUMATOID ARTHRITIS
     Route: 048
     Dates: start: 20060609, end: 20060611
  2. ARAVA [Suspect]
     Route: 048
     Dates: start: 20060612, end: 20060706
  3. ARAVA [Suspect]
     Route: 048
     Dates: start: 20060825, end: 20060907
  4. ARAVA [Suspect]
     Route: 048
     Dates: start: 20060928, end: 20080310
  5. ETANERCEPT [Suspect]
     Route: 058
     Dates: start: 20061026, end: 20080204
  6. MEDROL [Suspect]
     Route: 048
  7. QUESTRAN [Suspect]
     Dates: start: 20061204, end: 20061211
  8. OPALMON [Concomitant]
     Dosage: DOSE: 3 TABLETS
     Route: 048
     Dates: start: 20071113, end: 20080310
  9. VOLTAREN [Concomitant]
     Route: 048
  10. TAKEPRON [Concomitant]
     Route: 048
     Dates: end: 20070802
  11. MUCOSTA [Concomitant]
     Route: 048
  12. ALL OTHER THERAPEUTIC PRODUCTS [Concomitant]
     Route: 048
     Dates: start: 20061019
  13. ALENDRONATE SODIUM [Concomitant]
     Route: 048
     Dates: start: 20061019, end: 20080310
  14. ALLEGRA [Concomitant]
     Route: 048
     Dates: start: 20061124, end: 20061204
  15. CELESTAMINE TAB [Concomitant]
     Route: 048
     Dates: start: 20061127, end: 20061204

REACTIONS (1)
  - LEUKOENCEPHALOPATHY [None]
